FAERS Safety Report 16157029 (Version 1)
Quarter: 2019Q2

REPORT INFORMATION
  Report Type: Spontaneous
  Country: US (occurrence: US)
  Receive Date: 20190404
  Receipt Date: 20190404
  Transmission Date: 20190711
  Serious: No
  Sender: FDA-Public Use
  Company Number: US-MYLANLABS-2019M1025086

PATIENT

DRUGS (1)
  1. DOXEPIN HYDROCHLORIDE CAPSULES, USP [Suspect]
     Active Substance: DOXEPIN HYDROCHLORIDE
     Indication: NERVE INJURY
     Dosage: UNK
     Route: 065
     Dates: start: 201901

REACTIONS (6)
  - Nervousness [Unknown]
  - Headache [Unknown]
  - Nightmare [Unknown]
  - Initial insomnia [Unknown]
  - Depression [Unknown]
  - Off label use [Unknown]

NARRATIVE: CASE EVENT DATE: 201901
